FAERS Safety Report 5084511-4 (Version None)
Quarter: 2006Q3

REPORT INFORMATION
  Report Type: 
  Country: None (occurrence: None)
  Receive Date: 20060814
  Receipt Date: 20060731
  Transmission Date: 20061208
  Serious: Yes (Hospitalization)
  Sender: FDA-Public Use
  Company Number: FR200607005183

PATIENT
  Age: 76 Year
  Sex: Male
  Weight: 70 kg

DRUGS (2)
  1. GEMZAR [Suspect]
     Indication: PANCREATIC CARCINOMA METASTATIC
     Dosage: SEE IMAGE
     Route: 042
     Dates: start: 20051130, end: 20060412
  2. GEMZAR [Suspect]
     Indication: PANCREATIC CARCINOMA METASTATIC
     Dosage: SEE IMAGE
     Route: 042
     Dates: start: 20060510

REACTIONS (7)
  - ANAEMIA [None]
  - MUSCLE DISORDER [None]
  - OEDEMA [None]
  - OEDEMA PERIPHERAL [None]
  - PAIN IN EXTREMITY [None]
  - PHLEBITIS SUPERFICIAL [None]
  - SKIN EXFOLIATION [None]
